FAERS Safety Report 9269513 (Version 2)
Quarter: 2013Q2

REPORT INFORMATION
  Report Type: Spontaneous
  Country: KR (occurrence: KR)
  Receive Date: 20130503
  Receipt Date: 20130524
  Transmission Date: 20140414
  Serious: Yes (Hospitalization, Other)
  Sender: FDA-Public Use
  Company Number: KR-JNJFOC-20130415387

PATIENT
  Age: 5 Month
  Sex: Male

DRUGS (1)
  1. CHILDRENS TYLENOL [Suspect]
     Indication: PYREXIA
     Route: 048
     Dates: start: 201303

REACTIONS (2)
  - Hepatic enzyme increased [Unknown]
  - Platelet count decreased [Unknown]
